FAERS Safety Report 9686422 (Version 3)
Quarter: 2013Q4

REPORT INFORMATION
  Report Type: Report from Study
  Country: US (occurrence: US)
  Receive Date: 20131113
  Receipt Date: 20131120
  Transmission Date: 20140711
  Serious: Yes (Hospitalization)
  Sender: FDA-Public Use
  Company Number: US-B.I. PHARMACEUTICALS,INC./RIDGEFIELD-2013-BI-34438BP

PATIENT
  Age: 75 Year
  Sex: Male

DRUGS (11)
  1. GILOTRIF [Suspect]
     Indication: LUNG NEOPLASM MALIGNANT
     Dosage: 30 MG
     Route: 048
     Dates: start: 20131016
  2. DEXAMETHASONE [Concomitant]
  3. DOCUSATE SODIUM [Concomitant]
  4. HUMULIN SQ [Concomitant]
  5. LEVETIRACETAM [Concomitant]
  6. METOPROLOL [Concomitant]
  7. GENERIC PROTONIX [Concomitant]
  8. TRAMADOL [Concomitant]
  9. MIRTAZAPINE [Concomitant]
  10. MVI [Concomitant]
  11. ANTIDEPRESSANTS [Concomitant]
     Indication: DEPRESSION

REACTIONS (9)
  - Pulmonary thrombosis [Recovered/Resolved]
  - Heart rate increased [Recovered/Resolved]
  - Dyspnoea [Recovered/Resolved]
  - Decreased appetite [Not Recovered/Not Resolved]
  - Decubitus ulcer [Not Recovered/Not Resolved]
  - Dyspnoea [Unknown]
  - Oxygen saturation decreased [Unknown]
  - Diarrhoea [Recovered/Resolved]
  - Hypersomnia [Not Recovered/Not Resolved]
